FAERS Safety Report 4853618-6 (Version None)
Quarter: 2005Q4

REPORT INFORMATION
  Report Type: 
  Country: None (occurrence: None)
  Receive Date: 20051212
  Receipt Date: 20051123
  Transmission Date: 20060501
  Serious: Yes (Hospitalization)
  Sender: FDA-Public Use
  Company Number: FR200511002589

PATIENT
  Age: 80 Year
  Sex: Female

DRUGS (3)
  1. FORTEO [Suspect]
     Indication: OSTEOPOROSIS
     Dosage: 20 UG/DAY, SUBCUTANEOUS
     Route: 058
     Dates: start: 20050418, end: 20051005
  2. FORTEO PEN (250MCG/ML) (FORTEO PEN 250MCG/ML (3ML)) PEN, DISPOSABLE [Concomitant]
  3. EPREX [Concomitant]

REACTIONS (2)
  - NEPHROLITHIASIS [None]
  - TREMOR [None]
